FAERS Safety Report 18136742 (Version 1)
Quarter: 2020Q3

REPORT INFORMATION
  Report Type: Spontaneous
  Country: CN (occurrence: CN)
  Receive Date: 20200811
  Receipt Date: 20200811
  Transmission Date: 20201103
  Serious: Yes (Other)
  Sender: FDA-Public Use
  Company Number: CN-PFIZER INC-2020304407

PATIENT
  Age: 79 Year
  Sex: Female
  Weight: 60 kg

DRUGS (3)
  1. LIPITOR [Suspect]
     Active Substance: ATORVASTATIN CALCIUM
     Indication: METABOLIC DISORDER
     Dosage: 1 DF, DAILY
     Route: 048
     Dates: start: 20200721, end: 20200727
  2. SITAGLIPTIN PHOSPHATE [Concomitant]
     Active Substance: SITAGLIPTIN PHOSPHATE
     Indication: METABOLIC DISORDER
     Dosage: 100 MG, DAILY
     Route: 048
     Dates: start: 20200721, end: 20200727
  3. GLUCOBAY [Concomitant]
     Active Substance: ACARBOSE
     Indication: METABOLIC DISORDER
     Dosage: 0.1 G, 3X/DAY
     Route: 048
     Dates: start: 20200721, end: 20200727

REACTIONS (5)
  - Blood pressure increased [Recovering/Resolving]
  - Diarrhoea [Recovering/Resolving]
  - Throat irritation [Recovering/Resolving]
  - Gait disturbance [Recovering/Resolving]
  - Headache [Recovering/Resolving]

NARRATIVE: CASE EVENT DATE: 20200722
